FAERS Safety Report 25852291 (Version 2)
Quarter: 2025Q4

REPORT INFORMATION
  Report Type: Spontaneous
  Country: US (occurrence: US)
  Receive Date: 20250926
  Receipt Date: 20251011
  Transmission Date: 20260118
  Serious: No
  Sender: ABBVIE
  Company Number: US-ABBVIE-6467680

PATIENT
  Sex: Female

DRUGS (2)
  1. ARMOUR THYROID [Suspect]
     Active Substance: THYROID, PORCINE
     Indication: Product used for unknown indication
     Route: 048
  2. SYNTHROID [Suspect]
     Active Substance: LEVOTHYROXINE SODIUM
     Indication: Product used for unknown indication
     Route: 048
     Dates: start: 2001

REACTIONS (6)
  - Wrong technique in product usage process [Unknown]
  - Muscle spasms [Recovered/Resolved]
  - Gastrointestinal disorder [Unknown]
  - Insomnia [Unknown]
  - Product physical issue [Unknown]
  - Product colour issue [Unknown]
